FAERS Safety Report 17138705 (Version 1)
Quarter: 2019Q4

REPORT INFORMATION
  Report Type: Spontaneous
  Country: US (occurrence: US)
  Receive Date: 20191211
  Receipt Date: 20191211
  Transmission Date: 20200122
  Serious: No
  Sender: FDA-Public Use
  Company Number: US-UCBSA-2016019529

PATIENT
  Age: 77 Year
  Sex: Female

DRUGS (5)
  1. BOTULINUM TOXIN [Concomitant]
     Active Substance: BOTULINUM TOXIN NOS
     Indication: FACIAL SPASM
     Dosage: UNKNOWN DOSE, BIANNUALLY
  2. VIMPAT [Suspect]
     Active Substance: LACOSAMIDE
     Indication: FACIAL SPASM
     Dosage: 150 MG, 2X/DAY (BID)
     Dates: start: 201501
  3. VIMPAT [Suspect]
     Active Substance: LACOSAMIDE
     Dosage: 200 MG, 2X/DAY (BID)
  4. VIMPAT [Suspect]
     Active Substance: LACOSAMIDE
     Indication: OFF LABEL USE
     Dosage: 150 MG, ONCE DAILY (QD)
  5. VIMPAT [Suspect]
     Active Substance: LACOSAMIDE
     Dosage: 150 MG, 2X/DAY (BID)
     Dates: start: 201510

REACTIONS (1)
  - No adverse event [Unknown]
